FAERS Safety Report 7083596-3 (Version None)
Quarter: 2010Q4

REPORT INFORMATION
  Report Type: 
  Country: None (occurrence: None)
  Receive Date: 20101104
  Receipt Date: 20101027
  Transmission Date: 20110411
  Serious: Yes (Hospitalization, Other)
  Sender: FDA-Public Use
  Company Number: GB-B.I. PHARMACEUTICALS,INC./RIDGEFIELD-2010-UK-01006UK

PATIENT
  Sex: Female

DRUGS (5)
  1. PRADAXA [Suspect]
     Indication: THROMBOSIS PROPHYLAXIS
     Dosage: 220 MG
     Route: 048
     Dates: start: 20100401, end: 20100410
  2. PARACETAMOL [Concomitant]
     Dosage: 4 G
     Route: 048
  3. OMEPRAZOLE [Concomitant]
     Dosage: 20 MG
     Route: 048
  4. DICLOFENAC SODIUM [Concomitant]
     Dosage: 50 MG
     Route: 048
  5. LATANOPROST [Concomitant]
     Dosage: NOCTE
     Route: 061

REACTIONS (2)
  - LIVER FUNCTION TEST ABNORMAL [None]
  - PULMONARY EMBOLISM [None]
